FAERS Safety Report 4476735-1 (Version None)
Quarter: 2004Q4

REPORT INFORMATION
  Report Type: 
  Country: None (occurrence: None)
  Receive Date: 20041015
  Receipt Date: 20041015
  Transmission Date: 20050328
  Serious: Yes (Disabling)
  Sender: FDA-Public Use
  Company Number: None

PATIENT
  Age: 49 Year
  Sex: Female
  Weight: 47.1741 kg

DRUGS (6)
  1. DEPO-MEDROL [Suspect]
     Indication: HYPOAESTHESIA
     Dosage: 40MG PER CC   EPIDURAL
     Route: 008
     Dates: start: 20040430, end: 20040430
  2. DEPO-MEDROL [Suspect]
     Indication: INTERVERTEBRAL DISC PROTRUSION
     Dosage: 40MG PER CC   EPIDURAL
     Route: 008
     Dates: start: 20040430, end: 20040430
  3. DEPO-MEDROL [Suspect]
     Indication: NERVE COMPRESSION
     Dosage: 40MG PER CC   EPIDURAL
     Route: 008
     Dates: start: 20040430, end: 20040430
  4. ISOVUE-200 [Suspect]
     Indication: PAIN IN EXTREMITY
  5. PHYSICAL THERAPY ON HANDS [Concomitant]
  6. CHLORDIAZE/AMITRIP [Concomitant]

REACTIONS (26)
  - ABNORMAL SENSATION IN EYE [None]
  - ACTIVITIES OF DAILY LIVING IMPAIRED [None]
  - AMNESIA [None]
  - ASTHENIA [None]
  - BEDRIDDEN [None]
  - CONVULSION [None]
  - DIFFICULTY IN WALKING [None]
  - DIZZINESS [None]
  - DYSSTASIA [None]
  - FEELING ABNORMAL [None]
  - FEELING COLD [None]
  - HEADACHE POSTOPERATIVE [None]
  - HEART RATE INCREASED [None]
  - HYPOAESTHESIA [None]
  - INSOMNIA [None]
  - LOSS OF CONSCIOUSNESS [None]
  - NAUSEA [None]
  - PALPITATIONS [None]
  - PARAESTHESIA [None]
  - PARALYSIS [None]
  - POST PROCEDURAL COMPLICATION [None]
  - SENSATION OF PRESSURE [None]
  - TINNITUS [None]
  - TREMOR [None]
  - VERTIGO [None]
  - VOMITING [None]
